FAERS Safety Report 9470898 (Version 2)
Quarter: 2015Q1

REPORT INFORMATION
  Report Type: Spontaneous
  Country: US (occurrence: US)
  Receive Date: 20130822
  Receipt Date: 20150305
  Transmission Date: 20150721
  Serious: Yes (Hospitalization, Congenital Anomaly, Other)
  Sender: FDA-Public Use
  Company Number: US-ELI_LILLY_AND_COMPANY-US201308005441

PATIENT

DRUGS (4)
  1. PEPCID                             /00305201/ [Concomitant]
     Active Substance: ALUMINUM HYDROXIDE\MAGNESIUM CARBONATE
     Route: 064
  2. ZELNORM [Concomitant]
     Active Substance: TEGASEROD MALEATE
     Route: 064
  3. PROZAC [Suspect]
     Active Substance: FLUOXETINE HYDROCHLORIDE
     Indication: PRODUCT USED FOR UNKNOWN INDICATION
     Dosage: 20 MG, UNKNOWN
     Route: 064
     Dates: end: 20050712
  4. ZOVIRAX [Concomitant]
     Active Substance: ACYCLOVIR
     Indication: GENITAL HERPES
     Route: 064

REACTIONS (4)
  - Pierre Robin syndrome [Unknown]
  - Foetal exposure during pregnancy [Recovered/Resolved]
  - Umbilical cord around neck [Unknown]
  - Cleft lip and palate [Unknown]
